FAERS Safety Report 5846628-3 (Version None)
Quarter: 2008Q3

REPORT INFORMATION
  Report Type: 
  Country: None (occurrence: None)
  Receive Date: 20080815
  Receipt Date: 20080812
  Transmission Date: 20090109
  Serious: Yes (Other)
  Sender: FDA-Public Use
  Company Number: A0742223A

PATIENT
  Age: 62 Year
  Sex: Female

DRUGS (6)
  1. ADVAIR DISKUS 100/50 [Suspect]
     Indication: ASTHMA
     Dosage: 1PUFF TWICE PER DAY
     Route: 055
     Dates: start: 20080802
  2. ALBUTEROL [Suspect]
     Indication: ASTHMA
     Dosage: 1UNIT AS REQUIRED
     Route: 055
  3. SINGULAIR [Concomitant]
  4. LISINOPRIL [Concomitant]
  5. ALBUTEROL [Concomitant]
  6. CLONIDINE [Concomitant]

REACTIONS (4)
  - ASTHMA [None]
  - MEDICATION ERROR [None]
  - TONGUE DISCOLOURATION [None]
  - TREMOR [None]
